FAERS Safety Report 11219891 (Version 2)
Quarter: 2015Q4

REPORT INFORMATION
  Report Type: Spontaneous
  Country: FR (occurrence: FR)
  Receive Date: 20150625
  Receipt Date: 20151002
  Transmission Date: 20160304
  Serious: Yes (Other)
  Sender: FDA-Public Use
  Company Number: FR-ACORDA-ACO_111493_2015

PATIENT
  Age: 56 Year
  Sex: Female
  Weight: 65 kg

DRUGS (4)
  1. TRAMADOL. [Concomitant]
     Active Substance: TRAMADOL
     Indication: PRODUCT USED FOR UNKNOWN INDICATION
     Dosage: UNK
     Route: 065
     Dates: start: 201404
  2. QUTENZA [Suspect]
     Active Substance: CAPSAICIN
     Indication: NEURALGIA
     Dosage: UNK, UNKNOWN FREQ.
     Route: 061
     Dates: start: 20150220, end: 20150220
  3. QUTENZA [Suspect]
     Active Substance: CAPSAICIN
     Dosage: UNK, UNKNOWN FREQ.
     Route: 061
     Dates: start: 20150403, end: 20150403
  4. LAROXYL [Concomitant]
     Active Substance: AMITRIPTYLINE
     Indication: PRODUCT USED FOR UNKNOWN INDICATION
     Dosage: UNK
     Route: 065
     Dates: start: 201404

REACTIONS (5)
  - Inappropriate schedule of drug administration [Unknown]
  - Allodynia [Unknown]
  - Burns second degree [Recovered/Resolved]
  - Drug ineffective [Unknown]
  - Skin swelling [Recovered/Resolved]

NARRATIVE: CASE EVENT DATE: 2015
